FAERS Safety Report 6104086-8 (Version None)
Quarter: 2009Q1

REPORT INFORMATION
  Report Type: 
  Country: None (occurrence: None)
  Receive Date: 20090227
  Receipt Date: 20080305
  Transmission Date: 20090719
  Serious: Yes (Other)
  Sender: FDA-Public Use
  Company Number: 552256

PATIENT
  Sex: Female

DRUGS (8)
  1. ACCUTANE [Suspect]
     Indication: ACNE
     Dates: start: 19990203, end: 19990701
  2. NASACORT [Concomitant]
  3. LIPITOR [Concomitant]
  4. AVAPRO [Concomitant]
  5. SYNTHROID [Concomitant]
  6. ZYRTEC [Concomitant]
  7. PROZAC [Concomitant]
  8. CLINDAMYCIN HCL [Concomitant]

REACTIONS (4)
  - COLITIS [None]
  - COLITIS ULCERATIVE [None]
  - EMOTIONAL DISTRESS [None]
  - INFLAMMATORY BOWEL DISEASE [None]
